FAERS Safety Report 15027414 (Version 1)
Quarter: 2018Q2

REPORT INFORMATION
  Report Type: Spontaneous
  Country: DK (occurrence: DK)
  Receive Date: 20180619
  Receipt Date: 20180619
  Transmission Date: 20180711
  Serious: Yes (Other)
  Sender: FDA-Public Use
  Company Number: DK-TEVA-2018-DK-908746

PATIENT
  Age: 13 Year
  Sex: Male

DRUGS (2)
  1. ISOTRETINOIN ^ACTAVIS^ [Suspect]
     Active Substance: ISOTRETINOIN
     Indication: ACNE
     Dosage: 20 MILLIGRAM DAILY; STYRENE: 20 MG.
     Route: 048
     Dates: start: 20160609, end: 201710
  2. NORDITROPIN [Concomitant]
     Active Substance: SOMATROPIN
     Indication: BLOOD GROWTH HORMONE
     Dosage: 1.6 MILLIGRAM DAILY; DOSAGE: EVENING. USER PENMATE.?STRENGTH: 15MG / 1.5ML.
     Dates: start: 2007

REACTIONS (5)
  - Knee deformity [Not Recovered/Not Resolved]
  - Depressed mood [Unknown]
  - Pain [Not Recovered/Not Resolved]
  - Epiphyses premature fusion [Not Recovered/Not Resolved]
  - Loss of personal independence in daily activities [Not Recovered/Not Resolved]

NARRATIVE: CASE EVENT DATE: 2017
